FAERS Safety Report 4644043-1 (Version None)
Quarter: 2005Q2

REPORT INFORMATION
  Report Type: 
  Country: None (occurrence: None)
  Receive Date: 20050425
  Receipt Date: 20050413
  Transmission Date: 20051028
  Serious: Yes (Other)
  Sender: FDA-Public Use
  Company Number: US-BRISTOL-MYERS SQUIBB COMPANY-12931879

PATIENT

DRUGS (1)
  1. KENALOG-40 [Suspect]
     Route: 047

REACTIONS (1)
  - ENDOPHTHALMITIS [None]
